FAERS Safety Report 4599853-6 (Version None)
Quarter: 2005Q1

REPORT INFORMATION
  Report Type: 
  Country: None (occurrence: None)
  Receive Date: 20050303
  Receipt Date: 20050216
  Transmission Date: 20050727
  Serious: Yes (Hospitalization)
  Sender: FDA-Public Use
  Company Number: FR_050205857

PATIENT
  Age: 66 Year
  Sex: Female
  Weight: 64 kg

DRUGS (2)
  1. ALIMTA [Suspect]
     Indication: PLEURAL MESOTHELIOMA
     Dates: start: 20040101
  2. CISPLATIN [Concomitant]

REACTIONS (3)
  - BRONCHOSPASM [None]
  - RASH VESICULAR [None]
  - URTICARIA [None]
